FAERS Safety Report 23044409 (Version 1)
Quarter: 2023Q4

REPORT INFORMATION
  Report Type: Spontaneous
  Country: US (occurrence: US)
  Receive Date: 20231009
  Receipt Date: 20231009
  Transmission Date: 20240110
  Serious: No
  Sender: FDA-Public Use
  Company Number: US-ELI_LILLY_AND_COMPANY-US202310004127

PATIENT
  Sex: Male

DRUGS (8)
  1. INSULIN LISPRO [Suspect]
     Active Substance: INSULIN LISPRO
     Indication: Type 2 diabetes mellitus
     Dosage: 18 U, UNKNOWN
     Route: 058
  2. INSULIN LISPRO [Suspect]
     Active Substance: INSULIN LISPRO
     Indication: Type 2 diabetes mellitus
     Dosage: 18 U, UNKNOWN
     Route: 058
  3. INSULIN LISPRO [Suspect]
     Active Substance: INSULIN LISPRO
     Indication: Type 2 diabetes mellitus
     Dosage: 18 U, UNKNOWN
     Route: 058
  4. INSULIN LISPRO [Suspect]
     Active Substance: INSULIN LISPRO
     Dosage: 18 U, UNKNOWN
     Route: 058
  5. INSULIN LISPRO [Suspect]
     Active Substance: INSULIN LISPRO
     Dosage: 18 U, UNKNOWN
     Route: 058
  6. INSULIN LISPRO [Suspect]
     Active Substance: INSULIN LISPRO
     Dosage: 18 U, UNKNOWN
     Route: 058
  7. INSULIN LISPRO [Suspect]
     Active Substance: INSULIN LISPRO
     Dosage: 18 U, UNKNOWN
     Route: 058
  8. TRESIBA [Concomitant]
     Active Substance: INSULIN DEGLUDEC
     Indication: Product used for unknown indication

REACTIONS (3)
  - Incorrect product administration duration [Unknown]
  - Injection site bruising [Unknown]
  - Blood glucose decreased [Unknown]
